FAERS Safety Report 4537186-4 (Version None)
Quarter: 2004Q4

REPORT INFORMATION
  Report Type: 
  Country: None (occurrence: None)
  Receive Date: 20041221
  Receipt Date: 20041206
  Transmission Date: 20050328
  Serious: Yes (Hospitalization)
  Sender: FDA-Public Use
  Company Number: 203410

PATIENT
  Age: 47 Year
  Sex: Female
  Weight: 73.0291 kg

DRUGS (4)
  1. AVONEX [Suspect]
     Indication: MULTIPLE SCLEROSIS
     Dosage: 30 UG; QW; IM
     Route: 030
     Dates: start: 20040325, end: 20040701
  2. FOSAMAX [Concomitant]
  3. MULTI-VITAMIN [Concomitant]
  4. TYLENOL [Concomitant]

REACTIONS (8)
  - ADENOCARCINOMA [None]
  - CERVICAL POLYP [None]
  - COLON CANCER STAGE III [None]
  - INFLAMMATION [None]
  - METAPLASIA [None]
  - METASTASES TO LYMPH NODES [None]
  - METASTATIC NEOPLASM [None]
  - UTERINE LEIOMYOMA [None]
